FAERS Safety Report 8080266-X (Version None)
Quarter: 2012Q1

REPORT INFORMATION
  Report Type: 
  Country: None (occurrence: None)
  Receive Date: 20120130
  Receipt Date: 20120116
  Transmission Date: 20120608
  Serious: Yes (Other)
  Sender: FDA-Public Use
  Company Number: US-RANBAXY-2012US-52019

PATIENT

DRUGS (3)
  1. TARKA [Concomitant]
     Indication: HYPERTENSION
     Route: 065
  2. ACETAMINOPHEN [Suspect]
     Indication: ARTHRITIS
     Dosage: 650 MG, 4 CAPLETS IN 24 HOURS.
     Route: 048
     Dates: start: 20120113
  3. HYDROCHLOROTHIAZIDE [Concomitant]
     Indication: BLOOD PRESSURE
     Route: 065

REACTIONS (1)
  - BLOOD PRESSURE INCREASED [None]
